FAERS Safety Report 8447540-6 (Version None)
Quarter: 2012Q2

REPORT INFORMATION
  Report Type: 
  Country: None (occurrence: None)
  Receive Date: 20120613
  Receipt Date: 20120613
  Transmission Date: 20120825
  Serious: Yes (Death, Hospitalization)
  Sender: FDA-Public Use
  Company Number: None

PATIENT
  Age: 77 Year
  Sex: Male
  Weight: 106.5953 kg

DRUGS (1)
  1. PRADAXA [Suspect]

REACTIONS (2)
  - HEAD INJURY [None]
  - HAEMORRHAGE INTRACRANIAL [None]
